FAERS Safety Report 8072470-1 (Version None)
Quarter: 2012Q1

REPORT INFORMATION
  Report Type: 
  Country: None (occurrence: None)
  Receive Date: 20120126
  Receipt Date: 20120119
  Transmission Date: 20120608
  Serious: Yes (Other)
  Sender: FDA-Public Use
  Company Number: BR-PFIZER INC-2012015611

PATIENT
  Age: 75 Year
  Sex: Female

DRUGS (1)
  1. XALATAN [Suspect]
     Indication: GLAUCOMA
     Dosage: 3 UG, 2X/DAY (1 DROP EACH EYE, 2X/DAY)
     Route: 047
     Dates: start: 20090101, end: 20111201

REACTIONS (2)
  - EYE OPERATION [None]
  - EYE DISORDER [None]
